FAERS Safety Report 8264764-1 (Version None)
Quarter: 2012Q2

REPORT INFORMATION
  Report Type: 
  Country: None (occurrence: None)
  Receive Date: 20120406
  Receipt Date: 20120327
  Transmission Date: 20120825
  Serious: Yes (Other)
  Sender: FDA-Public Use
  Company Number: US-BRISTOL-MYERS SQUIBB COMPANY-16485567

PATIENT
  Age: 9 Year
  Sex: Male

DRUGS (2)
  1. DIPHENHYDRAMINE HCL [Concomitant]
  2. ABILIFY [Suspect]
     Dosage: DOSE REDUSED TO 5MG.

REACTIONS (4)
  - DYSTONIA [None]
  - EXTRAPYRAMIDAL DISORDER [None]
  - TONGUE PARALYSIS [None]
  - TRISMUS [None]
